FAERS Safety Report 22111952 (Version 6)
Quarter: 2024Q4

REPORT INFORMATION
  Report Type: Report from Study
  Country: DE (occurrence: DE)
  Receive Date: 20230318
  Receipt Date: 20241205
  Transmission Date: 20250115
  Serious: Yes (Hospitalization, Other)
  Sender: NOVARTIS
  Company Number: DE-002147023-NVSC2023DE057832

PATIENT
  Age: 65 Year
  Sex: Female
  Weight: 108 kg

DRUGS (5)
  1. COSENTYX [Suspect]
     Active Substance: SECUKINUMAB
     Indication: Psoriasis
     Dosage: 300 MG, QMO, (150 MG 2 PREFILLED SYRINGES EVERY 4 WEEKS (LAST 14 DAYS AGO)
     Route: 058
     Dates: start: 20180518
  2. COSENTYX [Suspect]
     Active Substance: SECUKINUMAB
     Dosage: 300 MG
     Route: 065
     Dates: start: 20180518, end: 20210520
  3. COSENTYX [Suspect]
     Active Substance: SECUKINUMAB
     Dosage: 300 MG, Q4W
     Route: 065
     Dates: start: 20210627
  4. CANDESARTAN [Concomitant]
     Active Substance: CANDESARTAN
     Indication: Product used for unknown indication
     Dosage: 8 MG, QD (1-0-0)
     Route: 065
  5. CANDESARTAN [Concomitant]
     Active Substance: CANDESARTAN
     Dosage: 8 MG, QD, BID, (1-0-1)
     Route: 065

REACTIONS (48)
  - Heart failure with reduced ejection fraction [Not Recovered/Not Resolved]
  - Myocardial infarction [Unknown]
  - Ischaemic cardiomyopathy [Unknown]
  - Dilated cardiomyopathy [Unknown]
  - Coronary artery stenosis [Not Recovered/Not Resolved]
  - Mitral valve incompetence [Unknown]
  - Tricuspid valve incompetence [Unknown]
  - Myocardial ischaemia [Unknown]
  - Dyspnoea exertional [Not Recovered/Not Resolved]
  - Coronary artery disease [Not Recovered/Not Resolved]
  - Bile duct stone [Unknown]
  - Glaucoma [Recovered/Resolved]
  - Osteochondrosis [Not Recovered/Not Resolved]
  - Aortic valve sclerosis [Unknown]
  - Left ventricular dilatation [Unknown]
  - Oedema [Unknown]
  - Clubbing [Unknown]
  - Cyanosis [Unknown]
  - Obesity [Unknown]
  - Herpes zoster [Unknown]
  - Dermatitis psoriasiform [Unknown]
  - Oedema peripheral [Unknown]
  - Scar [Unknown]
  - Breath sounds abnormal [Unknown]
  - Back pain [Recovered/Resolved]
  - Nasopharyngitis [Recovered/Resolved]
  - Psoriasis [Unknown]
  - Oropharyngeal pain [Recovered/Resolved]
  - Pruritus [Not Recovered/Not Resolved]
  - Sleep disorder [Recovered/Resolved]
  - Spinal pain [Not Recovered/Not Resolved]
  - Spinal stenosis [Not Recovered/Not Resolved]
  - Spondylolisthesis [Not Recovered/Not Resolved]
  - Upper respiratory tract infection [Unknown]
  - Weight increased [Not Recovered/Not Resolved]
  - Rhinorrhoea [Recovered/Resolved]
  - Tachyarrhythmia [Not Recovered/Not Resolved]
  - Pyrexia [Recovered/Resolved]
  - Infection [Recovered/Resolved]
  - Decreased appetite [Recovered/Resolved]
  - Somnolence [Recovered/Resolved]
  - Herpes simplex [Recovered/Resolved]
  - Hyperuricaemia [Unknown]
  - Facet joint syndrome [Not Recovered/Not Resolved]
  - Pain in extremity [Not Recovered/Not Resolved]
  - Depressed mood [Not Recovered/Not Resolved]
  - Dyspnoea [Not Recovered/Not Resolved]
  - Spinal osteoarthritis [Not Recovered/Not Resolved]

NARRATIVE: CASE EVENT DATE: 20190523
